FAERS Safety Report 19056274 (Version 2)
Quarter: 2021Q1

REPORT INFORMATION
  Report Type: Spontaneous
  Country: US (occurrence: US)
  Receive Date: 20210325
  Receipt Date: 20210331
  Transmission Date: 20210420
  Serious: No
  Sender: FDA-Public Use
  Company Number: US-TRIS PHARMA, INC.-21US009344

PATIENT

DRUGS (4)
  1. QUILLIVANT XR [Suspect]
     Active Substance: METHYLPHENIDATE HYDROCHLORIDE
     Indication: ATTENTION DEFICIT HYPERACTIVITY DISORDER
     Dosage: 3 MILLILITER, QD
     Route: 065
     Dates: start: 20200512
  2. QUILLIVANT XR [Suspect]
     Active Substance: METHYLPHENIDATE HYDROCHLORIDE
     Dosage: 3 MILLILITER, QD
     Route: 065
     Dates: start: 202004, end: 202004
  3. QUILLIVANT XR [Suspect]
     Active Substance: METHYLPHENIDATE HYDROCHLORIDE
     Dosage: 3 MILLILITER, QD
     Route: 065
     Dates: start: 20200314, end: 20200325
  4. QUILLIVANT XR [Suspect]
     Active Substance: METHYLPHENIDATE HYDROCHLORIDE
     Dosage: 2 MILLILITER, QD
     Route: 065
     Dates: start: 20200311, end: 20200313

REACTIONS (3)
  - Off label use [Unknown]
  - Intentional product misuse [Unknown]
  - Priapism [Recovered/Resolved]

NARRATIVE: CASE EVENT DATE: 20200311
